FAERS Safety Report 19515371 (Version 5)
Quarter: 2021Q4

REPORT INFORMATION
  Report Type: Spontaneous
  Country: AR (occurrence: AR)
  Receive Date: 20210710
  Receipt Date: 20211019
  Transmission Date: 20220303
  Serious: Yes (Other)
  Sender: FDA-Public Use
  Company Number: NVSC2021AR151718

PATIENT
  Sex: Female

DRUGS (11)
  1. GLIVEC [Suspect]
     Active Substance: IMATINIB MESYLATE
     Indication: Chronic myeloid leukaemia (in remission)
     Dosage: 400 MG, QD
     Route: 065
  2. GLIVEC [Suspect]
     Active Substance: IMATINIB MESYLATE
     Dosage: 400 UNK
     Route: 065
  3. ENALAPRIL MALEATE [Concomitant]
     Active Substance: ENALAPRIL MALEATE
     Indication: Blood pressure increased
     Dosage: 2 DF, 5 MG (ONE IN THE MORNING AND ONE AT NIGHT)
     Route: 065
  4. ALDACTONE [Concomitant]
     Active Substance: SPIRONOLACTONE
     Indication: Fluid retention
     Dosage: 0.25 MG, QOD (IN THE MORNING, BEFORE IT WAS EVERY DAY, STOPPED 15 DAYS AGO)
     Route: 065
  5. ALDACTONE [Concomitant]
     Active Substance: SPIRONOLACTONE
     Dosage: 0.25 MG, QOD
     Route: 065
  6. FUROSEMIDE [Concomitant]
     Active Substance: FUROSEMIDE
     Indication: Fluid retention
     Dosage: HALF IN THE MORNING AND HALF IN THE EVENING
     Route: 065
  7. TORIVAS [Concomitant]
     Indication: Blood cholesterol
     Dosage: 20 MG (HALF OF 40 MG (AT NIGHT, STARTED 6 YEARS AGO)
     Route: 065
  8. PEPTAZOL [Concomitant]
     Indication: Gastric disorder
     Dosage: 1 DF, QD (ONE IN THE MORNING IN AN EMPTY STOMACH, STARTED APPROX 20 YEARS AGO)
     Route: 065
  9. DAFLON [Concomitant]
     Indication: Product used for unknown indication
     Dosage: 500 MG, QD (IN THE SUMMER UP TO 2 DAILY, STARTED AFTER VARICOSE VEIN OPERATION)
     Route: 065
  10. ASPIRIN [Concomitant]
     Active Substance: ASPIRIN
     Indication: Product used for unknown indication
     Dosage: UNK
     Route: 065
  11. ASPIRIN [Concomitant]
     Active Substance: ASPIRIN
     Indication: Stent placement
     Dosage: 1 DF, QD AT NOON (UNIT NOT PROVDED)
     Route: 065

REACTIONS (7)
  - Choroidal effusion [Recovering/Resolving]
  - Blister [Recovered/Resolved]
  - Stress [Unknown]
  - Crying [Unknown]
  - Skin discolouration [Unknown]
  - Conjunctivitis [Unknown]
  - Hypersensitivity [Unknown]
